FAERS Safety Report 8496355-1 (Version None)
Quarter: 2012Q3

REPORT INFORMATION
  Report Type: 
  Country: None (occurrence: None)
  Receive Date: 20120709
  Receipt Date: 20120625
  Transmission Date: 20120928
  Serious: Yes (Life-Threatening, Hospitalization)
  Sender: FDA-Public Use
  Company Number: AU-MYLANLABS-2012S1013186

PATIENT
  Age: 22 Year
  Sex: Male

DRUGS (1)
  1. AZATHIOPRINE [Suspect]
     Dosage: 150MG DAILY
     Route: 065

REACTIONS (5)
  - PNEUMONITIS [None]
  - CYTOMEGALOVIRUS INFECTION [None]
  - HEPATITIS [None]
  - MULTI-ORGAN DISORDER [None]
  - HISTIOCYTOSIS HAEMATOPHAGIC [None]
